FAERS Safety Report 7744530-3 (Version None)
Quarter: 2011Q3

REPORT INFORMATION
  Report Type: 
  Country: None (occurrence: None)
  Receive Date: 20110912
  Receipt Date: 20110902
  Transmission Date: 20111222
  Serious: Yes (Hospitalization)
  Sender: FDA-Public Use
  Company Number: ES-ABBOTT-11P-144-0851145-01

PATIENT
  Age: 44 Year
  Sex: Female

DRUGS (5)
  1. AMOXICILLIN AND CLAVULANATE POTASSIUM [Concomitant]
     Indication: POSTOPERATIVE WOUND INFECTION
     Dates: start: 20090722
  2. CELEBREX [Concomitant]
     Indication: ARTHRALGIA
     Dates: start: 20100702
  3. COLESTID [Concomitant]
     Indication: LACTOSE INTOLERANCE
     Dosage: 1 BAG TWICE DAILY
     Dates: start: 20100702
  4. HUMIRA [Suspect]
     Indication: CROHN'S DISEASE
     Dosage: 160 MG (BASELINE)/80 MG (WEEK 2)
     Route: 058
     Dates: start: 20081030, end: 20101005
  5. PREDNISONE TAB [Concomitant]
     Indication: CROHN'S DISEASE

REACTIONS (1)
  - PYREXIA [None]
